FAERS Safety Report 6579660-5 (Version None)
Quarter: 2010Q1

REPORT INFORMATION
  Report Type: 
  Country: None (occurrence: None)
  Receive Date: 20100212
  Receipt Date: 20100202
  Transmission Date: 20100710
  Serious: Yes (Other)
  Sender: FDA-Public Use
  Company Number: SK-ROCHE-661309

PATIENT
  Age: 58 Year
  Sex: Male

DRUGS (7)
  1. BEVACIZUMAB [Suspect]
     Dosage: SEPTEMBER 2007 TO DECEMBER 2007 - 4 CYCLES
     Route: 065
     Dates: start: 20070901, end: 20071201
  2. BEVACIZUMAB [Suspect]
     Dosage: BEVACIZUMAB MONOTHERAPY.
     Route: 065
  3. CISPLATIN [Concomitant]
     Dates: start: 20070901, end: 20071201
  4. GEMCITABINUM [Concomitant]
     Dates: start: 20070901, end: 20071201
  5. LOZAP [Concomitant]
  6. BISOCARD [Concomitant]
  7. TORVACARD [Concomitant]

REACTIONS (2)
  - PANCYTOPENIA [None]
  - RENAL FAILURE [None]
